FAERS Safety Report 12237202 (Version 1)
Quarter: 2016Q2

REPORT INFORMATION
  Report Type: Spontaneous
  Country: US (occurrence: US)
  Receive Date: 20160405
  Receipt Date: 20160405
  Transmission Date: 20160815
  Serious: No
  Sender: FDA-Public Use
  Company Number: US-BAYER-2016-058071

PATIENT
  Age: 45 Year
  Sex: Male
  Weight: 86.63 kg

DRUGS (3)
  1. PREDNISONE. [Suspect]
     Active Substance: PREDNISONE
     Dosage: 1 DF, BID
     Route: 048
     Dates: start: 20130718
  2. ALEVE [Suspect]
     Active Substance: NAPROXEN SODIUM
     Dosage: 1 DF, BID
     Route: 048
     Dates: start: 20130718
  3. PLAQUENIL [Concomitant]
     Active Substance: HYDROXYCHLOROQUINE SULFATE
     Dosage: 2 DF, QD
     Route: 048
     Dates: start: 20150807, end: 20151210

REACTIONS (3)
  - Joint swelling [None]
  - Arthralgia [None]
  - Drug ineffective [None]
